FAERS Safety Report 8184393-8 (Version None)
Quarter: 2012Q1

REPORT INFORMATION
  Report Type: 
  Country: None (occurrence: None)
  Receive Date: 20120207
  Receipt Date: 20110207
  Transmission Date: 20120608
  Serious: Yes (Disabling)
  Sender: FDA-Public Use
  Company Number: 2011027575

PATIENT
  Age: 76 Year
  Sex: Female
  Weight: 63.5036 kg

DRUGS (14)
  1. VIVAGLOBIN [Suspect]
     Indication: IMMUNODEFICIENCY COMMON VARIABLE
     Dosage: SEE IMAGE
     Route: 058
     Dates: start: 20090101
  2. VIVAGLOBIN [Suspect]
     Indication: IMMUNODEFICIENCY COMMON VARIABLE
     Dosage: SEE IMAGE
     Route: 058
     Dates: start: 20091201
  3. VIVAGLOBIN [Suspect]
     Indication: IMMUNODEFICIENCY COMMON VARIABLE
     Dosage: SEE IMAGE
     Route: 058
     Dates: start: 20110204
  4. ASTELIN (DIPROPHYLLINE) [Concomitant]
  5. CENTRUM SILVER (CENTRUM SILVER) [Concomitant]
  6. SYNTHROID [Concomitant]
  7. ESTRADIOL [Concomitant]
  8. SINGULAIR [Concomitant]
  9. XYZAL [Concomitant]
  10. CLARINEX [Concomitant]
  11. REGLAN [Concomitant]
  12. CITRACAL D (CITRACAL + D) [Concomitant]
  13. METOCLOPRAMIDE [Concomitant]
  14. ADVAIR DISKUS 100/50 [Concomitant]

REACTIONS (1)
  - HEADACHE [None]
